FAERS Safety Report 21711128 (Version 1)
Quarter: 2022Q4

REPORT INFORMATION
  Report Type: Spontaneous
  Country: JP (occurrence: JP)
  Receive Date: 20221212
  Receipt Date: 20221212
  Transmission Date: 20230113
  Serious: No
  Sender: FDA-Public Use
  Company Number: JP-HBP-2022JP027780

PATIENT
  Age: 69 Year
  Sex: Female

DRUGS (6)
  1. PALONOSETRON HYDROCHLORIDE [Suspect]
     Active Substance: PALONOSETRON HYDROCHLORIDE
     Indication: Prophylaxis of nausea and vomiting
     Dosage: UNK, UNKNOWN
     Route: 041
     Dates: start: 20221005
  2. FOSNETUPITANT CHLORIDE HYDROCHLORIDE [Suspect]
     Active Substance: FOSNETUPITANT CHLORIDE HYDROCHLORIDE
     Indication: Prophylaxis of nausea and vomiting
     Dosage: UNK, UNKNOWN
     Route: 041
     Dates: start: 20221005
  3. DEXAMETHASONE SODIUM PHOSPHATE [Concomitant]
     Active Substance: DEXAMETHASONE SODIUM PHOSPHATE
     Indication: Prophylaxis of nausea and vomiting
     Dosage: UNK, UNKNOWN
     Route: 041
     Dates: start: 20221005
  4. XELODA [Concomitant]
     Active Substance: CAPECITABINE
     Indication: Colorectal cancer
     Dosage: UNK, UNKNOWN
     Route: 048
  5. OXALIPLATIN [Concomitant]
     Active Substance: OXALIPLATIN
     Indication: Colorectal cancer
     Dosage: UNK, UNKNOWN
     Route: 041
  6. BEVACIZUMAB [Concomitant]
     Active Substance: BEVACIZUMAB
     Indication: Colorectal cancer
     Dosage: UNK, UNKNOWN
     Route: 041

REACTIONS (5)
  - Flushing [Recovered/Resolved]
  - Pain [Recovered/Resolved]
  - Palpitations [Recovered/Resolved]
  - Chest pain [Recovered/Resolved]
  - Back pain [Recovered/Resolved]

NARRATIVE: CASE EVENT DATE: 20221005
